FAERS Safety Report 21103190 (Version 1)
Quarter: 2022Q3

REPORT INFORMATION
  Report Type: Spontaneous
  Country: IS (occurrence: IS)
  Receive Date: 20220720
  Receipt Date: 20220720
  Transmission Date: 20221027
  Serious: Yes (Hospitalization)
  Sender: FDA-Public Use
  Company Number: None

PATIENT
  Age: 51 Year
  Sex: Female

DRUGS (1)
  1. CUTAQUIG [Suspect]
     Active Substance: HUMAN IMMUNOGLOBULIN G
     Indication: Product used for unknown indication
     Dosage: ONE DOSE
     Route: 058
     Dates: start: 20211130

REACTIONS (5)
  - Muscle tightness [Unknown]
  - Headache [Unknown]
  - Faeces discoloured [Unknown]
  - Chills [Unknown]
  - Tremor [Unknown]
